FAERS Safety Report 20131905 (Version 1)
Quarter: 2021Q4

REPORT INFORMATION
  Report Type: Spontaneous
  Country: US (occurrence: US)
  Receive Date: 20211130
  Receipt Date: 20211130
  Transmission Date: 20220303
  Serious: No
  Sender: FDA-Public Use
  Company Number: US-MYLANLABS-2021M1067857

PATIENT
  Sex: Female

DRUGS (1)
  1. DENAVIR [Suspect]
     Active Substance: PENCICLOVIR
     Indication: Oral herpes
     Dosage: 1 PERCENT
     Route: 067

REACTIONS (1)
  - Incorrect route of product administration [Not Recovered/Not Resolved]
